FAERS Safety Report 4662067-5 (Version None)
Quarter: 2005Q2

REPORT INFORMATION
  Report Type: 
  Country: None (occurrence: None)
  Receive Date: 20050512
  Receipt Date: 20050502
  Transmission Date: 20051028
  Serious: Yes (Hospitalization)
  Sender: FDA-Public Use
  Company Number: A-US2005-09567

PATIENT
  Age: 49 Year
  Sex: Female

DRUGS (3)
  1. TRACLEER [Suspect]
     Indication: PULMONARY HYPERTENSION
     Dosage: 125 MG, BID, ORAL
     Route: 048
     Dates: start: 20050101, end: 20050413
  2. WARFARIN SODIUM [Concomitant]
  3. LASIX [Concomitant]

REACTIONS (6)
  - ABDOMINAL PAIN UPPER [None]
  - ARTHRALGIA [None]
  - CARDIAC DISORDER [None]
  - GASTROINTESTINAL ULCER [None]
  - HYPOTENSION [None]
  - WEIGHT DECREASED [None]
